FAERS Safety Report 16739979 (Version 1)
Quarter: 2019Q3

REPORT INFORMATION
  Report Type: Other
  Country: US (occurrence: ES)
  Receive Date: 20190826
  Receipt Date: 20190826
  Transmission Date: 20191005
  Serious: Yes (Other)
  Sender: FDA-Public Use
  Company Number: US-MACLEODS PHARMACEUTICALS US LTD-MAC2019022686

PATIENT

DRUGS (3)
  1. TIVICAY [Suspect]
     Active Substance: DOLUTEGRAVIR SODIUM
     Indication: HIV INFECTION
     Dosage: 1 COURSE, PRIOR TO CONCEPTION, DURING FIRST TRIMESTER
     Route: 048
     Dates: start: 20170322, end: 20180520
  2. EMTRICITABINE/TENOFOVIR [Suspect]
     Active Substance: EMTRICITABINE\TENOFOVIR
     Indication: HIV INFECTION
     Dosage: 1 COURSE, PRIOR TO CONCEPTION, DURING FIRST TRIMESTER
     Route: 048
     Dates: start: 20170322
  3. LAMIVUDINE. [Suspect]
     Active Substance: LAMIVUDINE
     Indication: HIV INFECTION
     Dosage: 1 COURSE, PRIOR TO CONCEPTION, DURING FIRST TRIMESTER
     Route: 048
     Dates: start: 20170322, end: 20180520

REACTIONS (2)
  - Maternal exposure during pregnancy [Unknown]
  - Abortion spontaneous [Unknown]
